FAERS Safety Report 8171941-7 (Version None)
Quarter: 2012Q1

REPORT INFORMATION
  Report Type: 
  Country: None (occurrence: None)
  Receive Date: 20120228
  Receipt Date: 20120223
  Transmission Date: 20120608
  Serious: Yes (Other)
  Sender: FDA-Public Use
  Company Number: KR-PFIZER INC-2012048653

PATIENT
  Sex: Male

DRUGS (2)
  1. TOVIAZ [Suspect]
     Indication: BLADDER IRRITATION
  2. TOVIAZ [Suspect]
     Indication: MICTURITION URGENCY
     Dosage: UNK
     Route: 048

REACTIONS (2)
  - URINE OUTPUT DECREASED [None]
  - URINE FLOW DECREASED [None]
